FAERS Safety Report 5608590-8 (Version None)
Quarter: 2008Q1

REPORT INFORMATION
  Report Type: 
  Country: None (occurrence: None)
  Receive Date: 20080130
  Receipt Date: 20080118
  Transmission Date: 20080703
  Serious: Yes (Other)
  Sender: FDA-Public Use
  Company Number: US-PFIZER INC-2008006651

PATIENT
  Sex: Female
  Weight: 58.636 kg

DRUGS (4)
  1. LYRICA [Suspect]
     Indication: FIBROMYALGIA
  2. PROZAC [Concomitant]
  3. WELLBUTRIN [Concomitant]
  4. EUGYNON [Concomitant]

REACTIONS (11)
  - ABDOMINAL DISTENSION [None]
  - COGNITIVE DISORDER [None]
  - DEPENDENCE [None]
  - DRUG INEFFECTIVE [None]
  - DRY MOUTH [None]
  - EUPHORIC MOOD [None]
  - HUNGER [None]
  - ILLUSION [None]
  - MEMORY IMPAIRMENT [None]
  - MOTOR DYSFUNCTION [None]
  - WEIGHT INCREASED [None]
